FAERS Safety Report 23662355 (Version 1)
Quarter: 2024Q1

REPORT INFORMATION
  Report Type: Spontaneous
  Country: US (occurrence: None)
  Receive Date: 20240321
  Receipt Date: 20240321
  Transmission Date: 20240410
  Serious: Yes (Other)
  Sender: FDA-Public Use
  Company Number: None

PATIENT
  Age: 21 Year
  Sex: Female
  Weight: 62.1 kg

DRUGS (5)
  1. TIANEPTINE [Suspect]
     Active Substance: TIANEPTINE
     Indication: Anxiety
     Dates: start: 20230715, end: 20230715
  2. TIANEPTINE [Suspect]
     Active Substance: TIANEPTINE
     Indication: Depression
  3. VYVANSE [Concomitant]
     Active Substance: LISDEXAMFETAMINE DIMESYLATE
  4. SPIRONOLACTONE [Concomitant]
     Active Substance: SPIRONOLACTONE
  5. VITAMIN D [Concomitant]
     Active Substance: VITAMIN D NOS

REACTIONS (14)
  - Hypoaesthesia [None]
  - Sensory loss [None]
  - Hypoaesthesia [None]
  - Heart rate increased [None]
  - Dizziness [None]
  - Anxiety [None]
  - Euphoric mood [None]
  - Panic reaction [None]
  - Self-injurious ideation [None]
  - Conversion disorder [None]
  - Crying [None]
  - Product use complaint [None]
  - Product complaint [None]
  - Suicidal ideation [None]

NARRATIVE: CASE EVENT DATE: 20230715
